FAERS Safety Report 23500758 (Version 1)
Quarter: 2024Q1

REPORT INFORMATION
  Report Type: Spontaneous
  Country: BR (occurrence: BR)
  Receive Date: 20240208
  Receipt Date: 20240208
  Transmission Date: 20240410
  Serious: Yes (Other)
  Sender: FDA-Public Use
  Company Number: BR-PFIZER INC-PV202400017727

PATIENT
  Age: 43 Year
  Sex: Male

DRUGS (1)
  1. TALIGLUCERASE ALFA [Suspect]
     Active Substance: TALIGLUCERASE ALFA
     Indication: Gaucher^s disease
     Dosage: UNK
     Route: 042
     Dates: start: 20210315

REACTIONS (8)
  - Syncope [Unknown]
  - Dizziness [Unknown]
  - Abdominal pain [Unknown]
  - Stress [Unknown]
  - Insomnia [Unknown]
  - Constipation [Unknown]
  - Pain in extremity [Unknown]
  - Toothache [Unknown]

NARRATIVE: CASE EVENT DATE: 20231101
